FAERS Safety Report 10530012 (Version 1)
Quarter: 2014Q4

REPORT INFORMATION
  Report Type: Spontaneous
  Country: US (occurrence: US)
  Receive Date: 20141021
  Receipt Date: 20141021
  Transmission Date: 20150528
  Serious: Yes (Hospitalization, Other)
  Sender: FDA-Public Use
  Company Number: US-AMGEN-USASP2014079997

PATIENT
  Age: 73 Year
  Sex: Female

DRUGS (5)
  1. OMEPRAZOLE                         /00661202/ [Concomitant]
     Indication: ULCER
     Dosage: UNK
  2. NEULASTA [Suspect]
     Active Substance: PEGFILGRASTIM
     Indication: NEUTROPENIA
     Dosage: UNK
     Route: 065
  3. CLONIDINE. [Concomitant]
     Active Substance: CLONIDINE
     Indication: BLOOD PRESSURE
     Dosage: UNK
  4. PREDNISONE. [Suspect]
     Active Substance: PREDNISONE
     Indication: NON-HODGKIN^S LYMPHOMA
     Dosage: 100 MG, FOR 2 DAYS
     Route: 065
  5. ALPRAZOLAM. [Concomitant]
     Active Substance: ALPRAZOLAM
     Dosage: UNK

REACTIONS (7)
  - Asthenia [Unknown]
  - Dyspnoea [Recovering/Resolving]
  - Haemoptysis [Unknown]
  - Implant site haemorrhage [Unknown]
  - White blood cell count increased [Unknown]
  - Blood pressure abnormal [Unknown]
  - Pain [Unknown]

NARRATIVE: CASE EVENT DATE: 2014
